FAERS Safety Report 9474713 (Version 1)
Quarter: 2013Q3

REPORT INFORMATION
  Report Type: Spontaneous
  Country: GB (occurrence: GB)
  Receive Date: 20130823
  Receipt Date: 20130823
  Transmission Date: 20140515
  Serious: Yes (Life-Threatening, Hospitalization, Disabling, Other)
  Sender: FDA-Public Use
  Company Number: GB-ACTAVIS-2013-15001

PATIENT
  Sex: 0

DRUGS (6)
  1. GABAPENTIN (UNKNOWN) [Suspect]
     Indication: FIBROMYALGIA
     Dosage: 100 MG, TID
     Route: 048
     Dates: start: 20120901
  2. STRONTIUM RANELATE [Suspect]
     Indication: OSTEOARTHRITIS
     Dosage: 2 G, DAILY
     Route: 048
     Dates: start: 20120901, end: 20130730
  3. TRAMADOL [Concomitant]
     Indication: PRODUCT USED FOR UNKNOWN INDICATION
     Route: 065
  4. AMITRIPTYLINE [Concomitant]
     Indication: PRODUCT USED FOR UNKNOWN INDICATION
  5. OMEPRAZOLE                         /00661202/ [Concomitant]
     Indication: PRODUCT USED FOR UNKNOWN INDICATION
     Route: 065
  6. CALCICHEW D3 [Concomitant]
     Indication: PRODUCT USED FOR UNKNOWN INDICATION
     Route: 065

REACTIONS (2)
  - Purpura [Unknown]
  - Vasculitic rash [Unknown]
